FAERS Safety Report 8067404-X (Version None)
Quarter: 2012Q1

REPORT INFORMATION
  Report Type: 
  Country: None (occurrence: None)
  Receive Date: 20120124
  Receipt Date: 20120118
  Transmission Date: 20120608
  Serious: No
  Sender: FDA-Public Use
  Company Number: US-BAYER-2012-006219

PATIENT
  Age: 44 Year
  Sex: Male

DRUGS (1)
  1. AVELOX [Suspect]
     Indication: PRODUCT USED FOR UNKNOWN INDICATION
     Dosage: UNK
     Dates: start: 20120110

REACTIONS (2)
  - THERAPEUTIC RESPONSE UNEXPECTED [None]
  - PRE-EXISTING CONDITION IMPROVED [None]
